FAERS Safety Report 24646621 (Version 1)
Quarter: 2024Q4

REPORT INFORMATION
  Report Type: Spontaneous
  Country: US (occurrence: None)
  Receive Date: 20241120
  Receipt Date: 20241120
  Transmission Date: 20250114
  Serious: Yes (Hospitalization)
  Sender: Public
  Company Number: None

PATIENT
  Age: 77 Year
  Sex: Male
  Weight: 70 kg

DRUGS (1)
  1. ALLOPURINOL [Suspect]
     Active Substance: ALLOPURINOL
     Indication: Tumour lysis syndrome
     Dosage: FREQUENCY : DAILY;?
     Route: 048
     Dates: start: 20240918, end: 20241006

REACTIONS (10)
  - Erythema multiforme [None]
  - Liver function test increased [None]
  - Rash [None]
  - Fatigue [None]
  - Erythema [None]
  - Face oedema [None]
  - Eyelid oedema [None]
  - Superior vena cava syndrome [None]
  - Drug reaction with eosinophilia and systemic symptoms [None]
  - Therapy cessation [None]

NARRATIVE: CASE EVENT DATE: 20241006
